FAERS Safety Report 5383041-X (Version None)
Quarter: 2007Q2

REPORT INFORMATION
  Report Type: 
  Country: None (occurrence: None)
  Receive Date: 20070629
  Receipt Date: 20061218
  Transmission Date: 20071010
  Serious: Yes (Other)
  Sender: FDA-Public Use
  Company Number: US200612003156

PATIENT
  Age: 64 Year
  Sex: Female

DRUGS (3)
  1. HUMULIN 70/30 [Suspect]
  2. HUMALOG MIX 50/50 [Suspect]
  3. HUMALOG 50NPL / 50L PEN (HUMALOG 50NPL/ 50L PEN) PEN, DISPOSABLE [Concomitant]

REACTIONS (5)
  - ABDOMINAL HERNIA [None]
  - ARTHRITIS [None]
  - BLOOD GLUCOSE INCREASED [None]
  - PULMONARY EMBOLISM [None]
  - WEIGHT DECREASED [None]
